FAERS Safety Report 8158811 (Version 2)
Quarter: 2013Q3

REPORT INFORMATION
  Report Type: Report from Study
  Country: UG (occurrence: UG)
  Receive Date: 20110927
  Receipt Date: 20130830
  Transmission Date: 20140515
  Serious: Yes (Death, Hospitalization, Disabling)
  Sender: FDA-Public Use
  Company Number: UG-ABBOTT-11P-165-0847707-00

PATIENT
  Age: 37 Year
  Sex: Female

DRUGS (4)
  1. ALUVIA TABLETS [Suspect]
     Indication: HIV INFECTION
     Route: 048
     Dates: start: 20110420
  2. TENOFOVIR [Concomitant]
     Indication: HIV INFECTION
     Dates: start: 20110420
  3. LAMIVUDINE [Concomitant]
     Indication: HIV INFECTION
     Dates: start: 20110420
  4. CO-TRIMOXAZOLE [Concomitant]
     Indication: PRODUCT USED FOR UNKNOWN INDICATION
     Dates: start: 20090330

REACTIONS (4)
  - Squamous cell carcinoma of lung [Fatal]
  - Acute respiratory failure [Fatal]
  - Chest pain [Not Recovered/Not Resolved]
  - Sepsis [Not Recovered/Not Resolved]
